FAERS Safety Report 6106342 (Version 26)
Quarter: 2012Q4

REPORT INFORMATION
  Report Type: 
  Country: US (occurrence: US)
  Receive Date: 20060814
  Receipt Date: 20121003
  Transmission Date: 20130627
  Serious: Yes (Hospitalization, Other)
  Sender: FDA-Public Use
  Company Number: US-ROCHE-458676

PATIENT
  Age: 17 None
  Sex: Male
  Weight: 68 kg

DRUGS (2)
  1. ACCUTANE [Suspect]
     Indication: ACNE PUSTULAR
     Dosage: UNSPECIFIED DATE PRIOR TO 13 AUGUST 1985
     Route: 048
  2. ACCUTANE [Suspect]
     Route: 048
     Dates: start: 19860210, end: 19870929

REACTIONS (21)
  - Crohn^s disease [Recovering/Resolving]
  - Hepatic cirrhosis [Unknown]
  - Dehydration [Recovered/Resolved]
  - Acute prerenal failure [Recovering/Resolving]
  - Colitis [Unknown]
  - Renal failure acute [Unknown]
  - Wound [Unknown]
  - Cholangitis [Unknown]
  - Cholangitis sclerosing [Unknown]
  - Chronic hepatic failure [Unknown]
  - Ileitis [Unknown]
  - Varices oesophageal [Unknown]
  - Large intestine polyp [Unknown]
  - Type 2 diabetes mellitus [Not Recovered/Not Resolved]
  - Nasal septum deviation [Unknown]
  - Pituitary tumour benign [Not Recovered/Not Resolved]
  - Nasal turbinate hypertrophy [Unknown]
  - Colitis ulcerative [Unknown]
  - Thrombocytopenia [Unknown]
  - Osteopenia [Not Recovered/Not Resolved]
  - Iron deficiency anaemia [Unknown]
